FAERS Safety Report 25894685 (Version 1)
Quarter: 2025Q4

REPORT INFORMATION
  Report Type: Spontaneous
  Country: CN (occurrence: CN)
  Receive Date: 20251008
  Receipt Date: 20251008
  Transmission Date: 20260117
  Serious: Yes (Hospitalization, Other)
  Sender: JIANGSU HENGRUI
  Company Number: CN-SUZHOU SHENGDIA BIOMEDICAL CO., LTD.-H2025235099

PATIENT
  Age: 55 Year
  Weight: 57.5 kg

DRUGS (4)
  1. PACLITAXEL [Suspect]
     Active Substance: PACLITAXEL
     Indication: Oesophageal carcinoma
     Dosage: 190 MG, Q3W
  2. CAMRELIZUMAB [Suspect]
     Active Substance: CAMRELIZUMAB
     Indication: Oesophageal carcinoma
     Dosage: 200 MG, Q3W
  3. CISPLATIN [Suspect]
     Active Substance: CISPLATIN
     Indication: Oesophageal carcinoma
     Dosage: 50 MG, Q3W
  4. SODIUM CHLORIDE [Concomitant]
     Active Substance: SODIUM CHLORIDE
     Indication: Vehicle solution use
     Dosage: 250 ML, 3 TIMES PRE 3 WEEKS

REACTIONS (1)
  - Autoimmune hepatitis [Recovering/Resolving]
